FAERS Safety Report 12210721 (Version 1)
Quarter: 2016Q1

REPORT INFORMATION
  Report Type: Spontaneous
  Country: US (occurrence: US)
  Receive Date: 20160325
  Receipt Date: 20160325
  Transmission Date: 20160526
  Serious: No
  Sender: FDA-Public Use
  Company Number: US-MALLINCKRODT-T201501666

PATIENT
  Sex: Male
  Weight: 82 kg

DRUGS (1)
  1. METHADONE [Suspect]
     Active Substance: METHADONE HYDROCHLORIDE
     Indication: PRODUCT USED FOR UNKNOWN INDICATION
     Dosage: 10 MG, TWO TABLETS TID
     Route: 048

REACTIONS (3)
  - Wrong technique in product usage process [Unknown]
  - Glossodynia [Unknown]
  - Hypoaesthesia oral [Unknown]
